FAERS Safety Report 5341649-1 (Version None)
Quarter: 2007Q2

REPORT INFORMATION
  Report Type: 
  Country: None (occurrence: None)
  Receive Date: 20070601
  Receipt Date: 20070525
  Transmission Date: 20071010
  Serious: Yes (Other)
  Sender: FDA-Public Use
  Company Number: ESWYE222218JAN07

PATIENT
  Sex: Female

DRUGS (4)
  1. VANDRAL RETARD [Suspect]
     Indication: DEPRESSION
     Route: 048
     Dates: start: 20050401, end: 20061110
  2. VANDRAL RETARD [Suspect]
     Route: 048
     Dates: start: 20061111, end: 20061201
  3. PRAZEPAM [Concomitant]
     Indication: ANXIETY
     Route: 048
     Dates: start: 20060501
  4. PARACETAMOL [Concomitant]
     Indication: OSTEOARTHRITIS
     Dosage: 500 MG THREE TIMES PER DAY IF NEEDED
     Route: 048

REACTIONS (5)
  - ALANINE AMINOTRANSFERASE INCREASED [None]
  - ASPARTATE AMINOTRANSFERASE INCREASED [None]
  - BLOOD CHOLESTEROL INCREASED [None]
  - GAMMA-GLUTAMYLTRANSFERASE INCREASED [None]
  - HEPATIC NEOPLASM MALIGNANT [None]
